FAERS Safety Report 5351971-0 (Version None)
Quarter: 2007Q2

REPORT INFORMATION
  Report Type: 
  Country: None (occurrence: None)
  Receive Date: 20070522
  Receipt Date: 20061109
  Transmission Date: 20071010
  Serious: Yes (Hospitalization, Other)
  Sender: FDA-Public Use
  Company Number: NUBN20060006

PATIENT
  Sex: Male
  Weight: 108.8633 kg

DRUGS (3)
  1. NUBAIN [Suspect]
     Indication: INJURY
     Dosage: 20-30 MG/DAY, INJECTION
     Route: 042
     Dates: start: 20010101, end: 20061023
  2. NUBAIN [Suspect]
     Indication: PAIN
     Dosage: 20-30 MG/DAY, INJECTION
     Route: 042
     Dates: start: 20010101, end: 20061023
  3. PROPOXYPHENE UNKNOWN [Suspect]
     Indication: PAIN
     Dosage: PER ORAL
     Route: 048

REACTIONS (3)
  - DRUG ABUSER [None]
  - DRUG DEPENDENCE [None]
  - DRUG SCREEN NEGATIVE [None]
